FAERS Safety Report 17059197 (Version 1)
Quarter: 2019Q4

REPORT INFORMATION
  Report Type: Spontaneous
  Country: US (occurrence: US)
  Receive Date: 20191023
  Receipt Date: 20191023
  Transmission Date: 20200122
  Serious: No
  Sender: FDA-Public Use
  Company Number: None

PATIENT
  Sex: Female

DRUGS (1)
  1. SIROLIMUS 1MG [Suspect]
     Active Substance: SIROLIMUS
     Indication: RENAL TRANSPLANT
     Route: 048
     Dates: start: 1976

REACTIONS (6)
  - Hot flush [None]
  - Memory impairment [None]
  - Chills [None]
  - Dry mouth [None]
  - Arthralgia [None]
  - Myalgia [None]
